FAERS Safety Report 13231799 (Version 1)
Quarter: 2017Q1

REPORT INFORMATION
  Report Type: Spontaneous
  Country: PL (occurrence: PL)
  Receive Date: 20170214
  Receipt Date: 20170214
  Transmission Date: 20170428
  Serious: Yes (Other)
  Sender: FDA-Public Use
  Company Number: PL-JNJFOC-20170209031

PATIENT
  Sex: Male

DRUGS (4)
  1. REMICADE [Suspect]
     Active Substance: INFLIXIMAB
     Indication: RHEUMATOID ARTHRITIS
     Route: 042
     Dates: start: 201512
  2. REMICADE [Suspect]
     Active Substance: INFLIXIMAB
     Indication: RHEUMATOID ARTHRITIS
     Route: 042
     Dates: start: 201601
  3. SYLIMAROL [Concomitant]
     Indication: ABDOMINAL PAIN UPPER
     Route: 065
  4. CONTROLOC CONTROL [Concomitant]
     Indication: ABDOMINAL PAIN UPPER
     Route: 065

REACTIONS (4)
  - Pain [Unknown]
  - Cardiovascular disorder [Not Recovered/Not Resolved]
  - Inner ear disorder [Not Recovered/Not Resolved]
  - Cerebrovascular disorder [Not Recovered/Not Resolved]

NARRATIVE: CASE EVENT DATE: 201603
